FAERS Safety Report 14044280 (Version 1)
Quarter: 2017Q4

REPORT INFORMATION
  Report Type: Spontaneous
  Country: US (occurrence: US)
  Receive Date: 20171004
  Receipt Date: 20171004
  Transmission Date: 20180321
  Serious: Yes (Other)
  Sender: FDA-Public Use
  Company Number: None

PATIENT
  Age: 82 Year
  Sex: Male
  Weight: 80.1 kg

DRUGS (21)
  1. VITAMIN D3 [Concomitant]
     Active Substance: CHOLECALCIFEROL
  2. OMEPRAZOLE. [Concomitant]
     Active Substance: OMEPRAZOLE
  3. CETIRIZINE [Concomitant]
     Active Substance: CETIRIZINE HYDROCHLORIDE
  4. BABY ASPIRIN [Concomitant]
     Active Substance: ASPIRIN
  5. VITAMIN E [Concomitant]
     Active Substance: .ALPHA.-TOCOPHEROL
  6. METOPROLOL. [Concomitant]
     Active Substance: METOPROLOL
  7. MAGNESIUM [Concomitant]
     Active Substance: MAGNESIUM
  8. VITAMIN B [Concomitant]
     Active Substance: VITAMIN B
  9. CRANBERRY. [Concomitant]
     Active Substance: CRANBERRY
  10. TAMSULOSIN [Concomitant]
     Active Substance: TAMSULOSIN
  11. MELOXICAM. [Concomitant]
     Active Substance: MELOXICAM
  12. SIMVASTATIN. [Concomitant]
     Active Substance: SIMVASTATIN
  13. HYDROCHLOROTHIAZIDE. [Concomitant]
     Active Substance: HYDROCHLOROTHIAZIDE
  14. FIBER SUPPLEMENT [Concomitant]
  15. VITAMIN A [Concomitant]
     Active Substance: VITAMIN A
  16. CINNAMON. [Concomitant]
     Active Substance: CINNAMON
  17. POTASSIUM [Concomitant]
     Active Substance: POTASSIUM
  18. VITAMIN C [Concomitant]
     Active Substance: ASCORBIC ACID
  19. LEG CRAMPS PILLS [Concomitant]
  20. CLONIDINE HCL 0.1 MG [Suspect]
     Active Substance: CLONIDINE HYDROCHLORIDE
     Indication: HYPERTENSION
     Dosage: ?          QUANTITY:30 TABLET(S);?
     Route: 048
     Dates: start: 20170711, end: 20170714
  21. LYSINE [Concomitant]
     Active Substance: LYSINE

REACTIONS (2)
  - Blood pressure decreased [None]
  - Dizziness [None]

NARRATIVE: CASE EVENT DATE: 20170714
